FAERS Safety Report 8011371-1 (Version None)
Quarter: 2011Q4

REPORT INFORMATION
  Report Type: 
  Country: None (occurrence: None)
  Receive Date: 20111222
  Receipt Date: 20111214
  Transmission Date: 20120403
  Serious: Yes (Other)
  Sender: FDA-Public Use
  Company Number: NGX_00792_2011

PATIENT
  Age: 72 Year
  Sex: Male

DRUGS (9)
  1. TRAMADOL HCL [Concomitant]
  2. FENTANYL [Concomitant]
  3. OMEPRAZOLE [Concomitant]
  4. MORPHINE [Concomitant]
  5. DYNASTAT [Concomitant]
  6. QUTENZA [Suspect]
     Indication: NEUROPATHY PERIPHERAL
     Dosage: 1 DF, PATCH, ON ABDOMINAL AREA, TOPICAL
     Route: 061
     Dates: start: 20110513, end: 20110513
  7. LONALGAL [Concomitant]
  8. PREGABALIN [Concomitant]
  9. APOTEL [Concomitant]

REACTIONS (7)
  - APPLICATION SITE ERYTHEMA [None]
  - COGNITIVE DISORDER [None]
  - DIZZINESS [None]
  - COORDINATION ABNORMAL [None]
  - DRY MOUTH [None]
  - HYPERTENSION [None]
  - SLEEP TERROR [None]
